FAERS Safety Report 9416527 (Version 1)
Quarter: 2013Q3

REPORT INFORMATION
  Report Type: Spontaneous
  Country: FR (occurrence: FR)
  Receive Date: 20130724
  Receipt Date: 20130724
  Transmission Date: 20140515
  Serious: Yes (Hospitalization)
  Sender: FDA-Public Use
  Company Number: FR-TEVA-420310ISR

PATIENT
  Age: 6 Year
  Sex: Female
  Weight: 28 kg

DRUGS (4)
  1. VINCRISTINE TEVA [Suspect]
     Indication: LEUKAEMIA
     Dosage: 1.5 MILLIGRAM DAILY; 4 INJECTIONS
     Route: 042
     Dates: start: 20130306, end: 20130327
  2. KIDROLASE [Suspect]
     Indication: B-CELL TYPE ACUTE LEUKAEMIA
     Dosage: 6000 IU (INTERNATIONAL UNIT) DAILY; 7 INJECTIONS
     Route: 030
     Dates: start: 20130308, end: 20130325
  3. DEXAMETHASONE MYLAN [Suspect]
     Indication: LEUKAEMIA
     Dosage: 6 MILLIGRAM DAILY;
     Route: 042
     Dates: start: 20130306, end: 20130326
  4. PREDNISONE ARROW [Concomitant]
     Indication: LEUKAEMIA
     Dosage: 60 MILLIGRAM DAILY;
     Route: 048
     Dates: start: 20130227, end: 20130305

REACTIONS (3)
  - Hypertriglyceridaemia [Recovered/Resolved]
  - Pancreatitis [Recovered/Resolved]
  - Hepatic steatosis [Recovered/Resolved]
